FAERS Safety Report 9365818 (Version 1)
Quarter: 2013Q2

REPORT INFORMATION
  Report Type: Report from Study
  Country: PL (occurrence: PL)
  Receive Date: 20130625
  Receipt Date: 20130625
  Transmission Date: 20140414
  Serious: No
  Sender: FDA-Public Use
  Company Number: PHHY2013PL064615

PATIENT
  Sex: Male

DRUGS (4)
  1. AMN107 [Suspect]
     Dosage: 400 MG, UNK
  2. OMEPRAZOL ^ACYFABRIK^ [Concomitant]
  3. AMLODIPIN [Concomitant]
  4. TAMSULOSINA [Concomitant]

REACTIONS (1)
  - Alanine aminotransferase increased [Not Recovered/Not Resolved]
